FAERS Safety Report 25721165 (Version 1)
Quarter: 2025Q3

REPORT INFORMATION
  Report Type: Spontaneous
  Country: EU (occurrence: EU)
  Receive Date: 20250825
  Receipt Date: 20250825
  Transmission Date: 20251021
  Serious: Yes (Other)
  Sender: MYLAN
  Company Number: None

PATIENT
  Age: 63 Year
  Sex: Female

DRUGS (8)
  1. ALPRAZOLAM [Suspect]
     Active Substance: ALPRAZOLAM
     Indication: Product used for unknown indication
     Dosage: 1-2 AT NIGHT, QD
  2. ALPRAZOLAM [Suspect]
     Active Substance: ALPRAZOLAM
     Dosage: 1-2 AT NIGHT, QD
     Route: 065
  3. ALPRAZOLAM [Suspect]
     Active Substance: ALPRAZOLAM
     Dosage: 1-2 AT NIGHT, QD
     Route: 065
  4. ALPRAZOLAM [Suspect]
     Active Substance: ALPRAZOLAM
     Dosage: 1-2 AT NIGHT, QD
  5. PROPIOMAZINE [Concomitant]
     Active Substance: PROPIOMAZINE
  6. PROPIOMAZINE [Concomitant]
     Active Substance: PROPIOMAZINE
     Route: 065
  7. PROPIOMAZINE [Concomitant]
     Active Substance: PROPIOMAZINE
     Route: 065
  8. PROPIOMAZINE [Concomitant]
     Active Substance: PROPIOMAZINE

REACTIONS (2)
  - Confusional state [Recovered/Resolved]
  - Psychotic symptom [Recovering/Resolving]

NARRATIVE: CASE EVENT DATE: 20250724
